FAERS Safety Report 4718255-2 (Version None)
Quarter: 2005Q3

REPORT INFORMATION
  Report Type: 
  Country: None (occurrence: None)
  Receive Date: 20050714
  Receipt Date: 20040713
  Transmission Date: 20060218
  Serious: Yes (Hospitalization)
  Sender: FDA-Public Use
  Company Number: HQWYE017113JUL04

PATIENT
  Age: 15 Year
  Sex: Female
  Weight: 49.94 kg

DRUGS (2)
  1. ADVIL [Suspect]
     Dosage: UNKNOWN, ORAL
     Route: 048
     Dates: start: 20040701, end: 20040701
  2. ALEVE [Suspect]
     Dosage: ORAL
     Route: 048
     Dates: start: 20040701, end: 20040701

REACTIONS (2)
  - INTENTIONAL MISUSE [None]
  - SOMNOLENCE [None]
